FAERS Safety Report 17197567 (Version 3)
Quarter: 2022Q1

REPORT INFORMATION
  Report Type: Spontaneous
  Country: None (occurrence: ES)
  Receive Date: 20191224
  Receipt Date: 20220316
  Transmission Date: 20220423
  Serious: Yes (Life-Threatening)
  Sender: FDA-Public Use
  Company Number: None

PATIENT
  Age: 34 Year
  Sex: Female
  Weight: 60 kg

DRUGS (11)
  1. NITROUS OXIDE [Suspect]
     Active Substance: NITROUS OXIDE
     Indication: Anaesthesia
     Route: 055
     Dates: start: 20190215, end: 20190215
  2. ACETAMINOPHEN [Suspect]
     Active Substance: ACETAMINOPHEN
     Route: 042
     Dates: start: 20190214, end: 20190216
  3. FILGRASTIM [Suspect]
     Active Substance: FILGRASTIM
     Route: 065
     Dates: start: 20190224
  4. METAMIZOL [Suspect]
     Active Substance: METAMIZOLE SODIUM
     Route: 042
     Dates: start: 20190214
  5. MEROPENEM [Suspect]
     Active Substance: MEROPENEM
     Route: 042
     Dates: start: 20190224
  6. AMOXICILLIN\CLAVULANIC ACID [Suspect]
     Active Substance: AMOXICILLIN\CLAVULANIC ACID
     Route: 065
     Dates: start: 20190214, end: 20190215
  7. LORAZEPAM [Suspect]
     Active Substance: LORAZEPAM
     Route: 065
     Dates: start: 20190214
  8. ACETAMINOPHEN [Suspect]
     Active Substance: ACETAMINOPHEN
     Route: 065
     Dates: start: 20190217
  9. RANITIDINE [Suspect]
     Active Substance: RANITIDINE
     Route: 042
     Dates: start: 20190214
  10. OMEPRAZOLE [Suspect]
     Active Substance: OMEPRAZOLE
     Dates: start: 20190214
  11. METAMIZOLE MAGNESIUM [Suspect]
     Active Substance: METAMIZOLE MAGNESIUM
     Route: 042
     Dates: start: 20190214, end: 20190216

REACTIONS (3)
  - Agranulocytosis [Unknown]
  - Neutropenia [Unknown]
  - Anaemia [Unknown]

NARRATIVE: CASE EVENT DATE: 20190223
